FAERS Safety Report 24813357 (Version 2)
Quarter: 2025Q1

REPORT INFORMATION
  Report Type: Spontaneous
  Country: US (occurrence: US)
  Receive Date: 20250107
  Receipt Date: 20250114
  Transmission Date: 20250408
  Serious: No
  Sender: AMGEN
  Company Number: US-AMGEN-USASP2025001360

PATIENT
  Sex: Male
  Weight: 79.7 kg

DRUGS (9)
  1. TALIMOGENE LAHERPAREPVEC [Suspect]
     Active Substance: TALIMOGENE LAHERPAREPVEC
     Indication: Malignant melanoma
     Dosage: UNK UNK, Q2WK
     Route: 065
  2. BINIMETINIB [Suspect]
     Active Substance: BINIMETINIB
     Indication: Malignant melanoma
     Dosage: 45 MILLIGRAM, BID
     Route: 048
     Dates: start: 20230821, end: 20240415
  3. ASPIRIN [Concomitant]
     Active Substance: ASPIRIN
  4. ATORVASTATIN [Concomitant]
     Active Substance: ATORVASTATIN
  5. CETIRIZINE [Concomitant]
     Active Substance: CETIRIZINE HYDROCHLORIDE
  6. LISINOPRIL [Concomitant]
     Active Substance: LISINOPRIL
  7. OMEPRAZOLE [Concomitant]
     Active Substance: OMEPRAZOLE
  8. SILDENAFIL [Concomitant]
     Active Substance: SILDENAFIL
  9. TAMSULOSIN [Concomitant]
     Active Substance: TAMSULOSIN

REACTIONS (2)
  - Dropped head syndrome [Recovered/Resolved]
  - Off label use [Unknown]
